FAERS Safety Report 8343692-7 (Version None)
Quarter: 2012Q2

REPORT INFORMATION
  Report Type: 
  Country: None (occurrence: None)
  Receive Date: 20120503
  Receipt Date: 20120425
  Transmission Date: 20120825
  Serious: Yes (Hospitalization)
  Sender: FDA-Public Use
  Company Number: 2012SP020274

PATIENT
  Age: 53 Year
  Sex: Female

DRUGS (6)
  1. NEORECORMON [Concomitant]
  2. ISENTRESS [Concomitant]
  3. VICTRELIS [Suspect]
     Indication: HEPATITIS C
     Dosage: 800 MG;TID
     Dates: start: 20111026, end: 20120418
  4. PEGASYS [Suspect]
     Indication: HEPATITIS C
     Dosage: 180 MCG;QW;SC
     Route: 058
     Dates: start: 20110926, end: 20120419
  5. COPEGUS [Suspect]
     Indication: HEPATITIS C
     Dosage: 200 MG;TDI
     Dates: start: 20110926, end: 20120419
  6. TRUVADA [Concomitant]

REACTIONS (19)
  - DECREASED APPETITE [None]
  - PROTEUS TEST POSITIVE [None]
  - ASTHENIA [None]
  - BACK PAIN [None]
  - DIZZINESS [None]
  - SEPSIS [None]
  - FUNGAL TEST POSITIVE [None]
  - PYELONEPHRITIS [None]
  - CHILLS [None]
  - RENAL FAILURE ACUTE [None]
  - ELECTROCARDIOGRAM T WAVE INVERSION [None]
  - RESPIRATORY ALKALOSIS [None]
  - NAUSEA [None]
  - ESCHERICHIA TEST POSITIVE [None]
  - CYSTITIS [None]
  - LUNG DISORDER [None]
  - COUGH [None]
  - DYSPNOEA EXERTIONAL [None]
  - HYPONATRAEMIA [None]
